FAERS Safety Report 12864481 (Version 1)
Quarter: 2016Q4

REPORT INFORMATION
  Report Type: Spontaneous
  Country: US (occurrence: US)
  Receive Date: 20161018
  Receipt Date: 20161018
  Transmission Date: 20170207
  Serious: Yes (Hospitalization)
  Sender: FDA-Public Use
  Company Number: None

PATIENT
  Age: 38 Year
  Sex: Female

DRUGS (7)
  1. TMP/SMX SS [Suspect]
     Active Substance: SULFAMETHOXAZOLE\TRIMETHOPRIM
     Indication: ANTIFUNGAL PROPHYLAXIS
     Dosage: TMP/SMX SS - 400-80 DF DAILY PO
     Route: 048
     Dates: start: 20160728, end: 20160823
  2. RANITIDINE. [Concomitant]
     Active Substance: RANITIDINE
  3. CYANOCOBALAMIN. [Concomitant]
     Active Substance: CYANOCOBALAMIN
  4. WARFARIN [Concomitant]
     Active Substance: WARFARIN
  5. CALCIUM CARBONATE. [Concomitant]
     Active Substance: CALCIUM CARBONATE
  6. MULTIVITAMIN [Concomitant]
     Active Substance: VITAMINS
  7. PREDNISONE. [Concomitant]
     Active Substance: PREDNISONE

REACTIONS (1)
  - Eczema [None]

NARRATIVE: CASE EVENT DATE: 20160826
